FAERS Safety Report 21691755 (Version 1)
Quarter: 2022Q4

REPORT INFORMATION
  Report Type: Report from Study
  Country: US (occurrence: US)
  Receive Date: 20221207
  Receipt Date: 20221207
  Transmission Date: 20230113
  Serious: No
  Sender: FDA-Public Use
  Company Number: US-ABBVIE-4191436

PATIENT
  Sex: Female

DRUGS (1)
  1. HUMIRA [Suspect]
     Active Substance: ADALIMUMAB
     Indication: Juvenile idiopathic arthritis
     Dosage: STRENGTH: 40 MG
     Route: 058

REACTIONS (4)
  - Upper respiratory tract infection [Recovered/Resolved]
  - Ear infection [Recovered/Resolved]
  - Pharyngitis [Recovered/Resolved]
  - Conjunctivitis [Recovered/Resolved]
